FAERS Safety Report 9406903 (Version 7)
Quarter: 2014Q1

REPORT INFORMATION
  Report Type: Spontaneous
  Country: US (occurrence: US)
  Receive Date: 20130718
  Receipt Date: 20140218
  Transmission Date: 20141002
  Serious: Yes (Hospitalization, Disabling, Other)
  Sender: FDA-Public Use
  Company Number: US-009507513-1307USA005975

PATIENT
  Sex: Female
  Weight: 158.32 kg

DRUGS (21)
  1. FOSAMAX [Suspect]
     Indication: OSTEOPOROSIS
     Dosage: 70 MG, QW
     Route: 048
     Dates: start: 200108, end: 20080211
  2. FOSAMAX [Suspect]
     Indication: OSTEOPENIA
     Dosage: 35 MG, QW
     Route: 048
     Dates: start: 20061207
  3. ALENDRONATE SODIUM [Suspect]
     Indication: OSTEOPOROSIS
     Dosage: 70 MG, UNK
     Dates: start: 20080310, end: 20120507
  4. CALCIUM (UNSPECIFIED) (+) VITAMIN D (UNSPECIFIED) [Concomitant]
     Dosage: UNK, QD
     Dates: start: 1995
  5. LEVOTHYROXINE SODIUM [Concomitant]
     Indication: HYPOTHYROIDISM
     Dosage: UNK
     Dates: start: 1993
  6. ALBUTEROL [Concomitant]
     Indication: ASTHMA
     Dosage: UNK, UNK
     Dates: start: 1990
  7. ACTONEL [Concomitant]
     Indication: OSTEOPOROSIS
     Dosage: 5 MG, QD
  8. ACTONEL [Concomitant]
     Indication: OSTEOPENIA
  9. VIACTIV SOFT CALCIUM CHEWS [Concomitant]
     Indication: OSTEOPOROSIS
  10. VIACTIV SOFT CALCIUM CHEWS [Concomitant]
     Indication: OSTEOPENIA
  11. CALTRATE (CALCIUM CARBONATE) [Concomitant]
     Indication: OSTEOPOROSIS
  12. CALTRATE (CALCIUM CARBONATE) [Concomitant]
     Indication: OSTEOPENIA
  13. CITRACAL + D [Concomitant]
     Indication: OSTEOPOROSIS
  14. CITRACAL + D [Concomitant]
     Indication: OSTEOPENIA
  15. TUMS [Concomitant]
     Indication: OSTEOPOROSIS
  16. TUMS [Concomitant]
     Indication: OSTEOPENIA
  17. LOVASTATIN [Concomitant]
     Indication: BLOOD CHOLESTEROL INCREASED
  18. OS-CAL (CALCIUM CARBONATE) [Concomitant]
     Indication: OSTEOPOROSIS
     Dosage: 500 DF, TID
  19. VITAMIN D (UNSPECIFIED) [Concomitant]
     Indication: OSTEOPOROSIS
  20. CALCIUM (UNSPECIFIED) [Concomitant]
     Indication: OSTEOPOROSIS
     Dosage: 1200 MG, QD
  21. CALCIUM (UNSPECIFIED) [Concomitant]
     Indication: OSTEOPENIA
     Dosage: 1500 MG, QD

REACTIONS (45)
  - Femur fracture [Unknown]
  - Femur fracture [Not Recovered/Not Resolved]
  - Intramedullary rod insertion [Unknown]
  - Intramedullary rod insertion [Unknown]
  - Renal transplant [Unknown]
  - Medical device change [Unknown]
  - Culture tissue specimen [Unknown]
  - Abscess soft tissue [Unknown]
  - Debridement [Unknown]
  - Medical device removal [Unknown]
  - Disability [Not Recovered/Not Resolved]
  - Medical device removal [Unknown]
  - Incisional drainage [Not Recovered/Not Resolved]
  - Low turnover osteopathy [Unknown]
  - Depression [Not Recovered/Not Resolved]
  - Anxiety [Not Recovered/Not Resolved]
  - Osteomyelitis [Unknown]
  - Type 2 diabetes mellitus [Unknown]
  - Epicondylitis [Unknown]
  - Blood cholesterol increased [Unknown]
  - Nephrolithiasis [Unknown]
  - Sleep apnoea syndrome [Unknown]
  - Pain [Not Recovered/Not Resolved]
  - Neuritis [Unknown]
  - Dyspnoea [Unknown]
  - Anaemia [Unknown]
  - Cellulitis [Unknown]
  - Rosacea [Unknown]
  - C-reactive protein increased [Unknown]
  - Incisional hernia [Unknown]
  - Spinal fracture [Unknown]
  - Body height decreased [Unknown]
  - Poor quality sleep [Unknown]
  - Oxygen saturation decreased [Unknown]
  - Debridement [Unknown]
  - Pain [Unknown]
  - Hypothyroidism [Unknown]
  - Hypertrophic cardiomyopathy [Unknown]
  - Cardiac failure congestive [Recovered/Resolved]
  - Cardiac murmur [Unknown]
  - Bursitis [Unknown]
  - Chronic obstructive pulmonary disease [Not Recovered/Not Resolved]
  - Muscle spasms [Unknown]
  - Myalgia [Unknown]
  - Pain in extremity [Unknown]
